FAERS Safety Report 24147012 (Version 4)
Quarter: 2024Q3

REPORT INFORMATION
  Report Type: Spontaneous
  Country: CZ (occurrence: CZ)
  Receive Date: 20240729
  Receipt Date: 20240926
  Transmission Date: 20241017
  Serious: Yes (Other)
  Sender: SANOFI AVENTIS
  Company Number: CZ-SA-2024SA215599

PATIENT
  Age: 45 Year
  Sex: Female

DRUGS (1)
  1. DUPIXENT [Suspect]
     Active Substance: DUPILUMAB
     Indication: Dermatitis atopic
     Dosage: 300 MG, QOW
     Dates: start: 202011

REACTIONS (7)
  - Herpes zoster oticus [Not Recovered/Not Resolved]
  - Swelling face [Not Recovered/Not Resolved]
  - Papule [Not Recovered/Not Resolved]
  - Blister [Not Recovered/Not Resolved]
  - Facial paralysis [Not Recovered/Not Resolved]
  - Anisocoria [Not Recovered/Not Resolved]
  - Ear pain [Not Recovered/Not Resolved]

NARRATIVE: CASE EVENT DATE: 20221101
